FAERS Safety Report 8891215 (Version 1)
Quarter: 2012Q4

REPORT INFORMATION
  Report Type: 
  Country: US (occurrence: US)
  Receive Date: 20121107
  Receipt Date: 20121107
  Transmission Date: 20130627
  Serious: No
  Sender: FDA-Public Use
  Company Number: US-ASTRAZENECA-2012SE81392

PATIENT
  Age: 57 Year

DRUGS (6)
  1. SYMBICORT [Suspect]
     Dosage: 160/4.5 MCG, 1 PUFF TWO TIMES DAILY
     Route: 055
     Dates: start: 20121016
  2. LISINOPRIL + HYDROCHLOROTHIAZIDE [Suspect]
     Dosage: 20-12.5 MG TABLET
     Route: 048
     Dates: start: 20120928
  3. PROVENTIL HFA [Concomitant]
     Indication: DYSPNOEA
     Dosage: 108 MCG AEROSOL SOLN, 1 PUFF EVERY 4 HOURS AS NEEDED
     Route: 055
     Dates: start: 20121016
  4. ADVAIR DISKUS [Concomitant]
     Dosage: 250-50 MCG AERO POW BR ACT, 1 PUFF TWO TIMES DAILY
     Route: 055
     Dates: start: 20121016
  5. DOXYCYCLINE HYCLATE [Concomitant]
     Route: 048
     Dates: start: 20121016
  6. HYDROCODONE-ACETAMINOPHANE [Concomitant]
     Indication: PAIN
     Dosage: 5-500 MG, 1 TABLET EVERY 4-6 HOURS AS NEEDED
     Route: 048
     Dates: start: 20120928

REACTIONS (9)
  - Essential hypertension [Unknown]
  - Obstructive airways disorder [Unknown]
  - Chronic obstructive pulmonary disease [Unknown]
  - Back pain [Unknown]
  - Bronchitis [Unknown]
  - Paraesthesia [Unknown]
  - Hypertension [Unknown]
  - Hypoaesthesia [Unknown]
  - Arthralgia [Unknown]
